FAERS Safety Report 25775614 (Version 1)
Quarter: 2025Q3

REPORT INFORMATION
  Report Type: Spontaneous
  Country: BR (occurrence: BR)
  Receive Date: 20250909
  Receipt Date: 20250909
  Transmission Date: 20251020
  Serious: Yes (Disabling, Other)
  Sender: SANDOZ
  Company Number: BR-SANDOZ-SDZ2025BR064118

PATIENT
  Sex: Male

DRUGS (3)
  1. ADALIMUMAB [Suspect]
     Active Substance: ADALIMUMAB
     Indication: Axial spondyloarthritis
     Route: 065
  2. METHOTREXATE [Suspect]
     Active Substance: METHOTREXATE
     Indication: Axial spondyloarthritis
     Dosage: 20 MG, QW
     Route: 065
  3. SECUKINUMAB [Suspect]
     Active Substance: SECUKINUMAB
     Indication: Axial spondyloarthritis
     Dosage: 150 MG/ML INJECTABLE (FILLED SYRINGE) (FREQUENCY OF ADMINISTRATION OF SECUKINUMAB: 1ST MONTH-5, 2ND
     Route: 065

REACTIONS (2)
  - Axial spondyloarthritis [Unknown]
  - Condition aggravated [Unknown]
